FAERS Safety Report 5849021-2 (Version None)
Quarter: 2008Q3

REPORT INFORMATION
  Report Type: 
  Country: None (occurrence: None)
  Receive Date: 20080815
  Receipt Date: 20080529
  Transmission Date: 20090109
  Serious: Yes (Other)
  Sender: FDA-Public Use
  Company Number: 2008EU001282

PATIENT
  Age: 8 Year
  Sex: Male

DRUGS (4)
  1. TACROLIMUS [Suspect]
     Indication: RENAL TRANSPLANT
     Dosage: 1.5 MG, BID, 1 MG, BID
     Dates: start: 20050901, end: 20070101
  2. TACROLIMUS [Suspect]
     Indication: RENAL TRANSPLANT
     Dosage: 1.5 MG, BID, 1 MG, BID
     Dates: start: 20070101
  3. MYCOPHENOLATE MOFETIL [Concomitant]
  4. PREDNISONE [Concomitant]

REACTIONS (7)
  - CSF PROTEIN INCREASED [None]
  - MUSCULAR WEAKNESS [None]
  - MUSCULOSKELETAL PAIN [None]
  - NEUROTOXICITY [None]
  - RADICULITIS BRACHIAL [None]
  - RED BLOOD CELLS CSF POSITIVE [None]
  - SENSORIMOTOR DISORDER [None]
